FAERS Safety Report 23303989 (Version 2)
Quarter: 2023Q4

REPORT INFORMATION
  Report Type: Spontaneous
  Country: DE (occurrence: DE)
  Receive Date: 20231215
  Receipt Date: 20231227
  Transmission Date: 20240109
  Serious: Yes (Other)
  Sender: FDA-Public Use
  Company Number: DE-BIOMARINAP-DE-2023-154620

PATIENT

DRUGS (1)
  1. VIMIZIM [Suspect]
     Active Substance: ELOSULFASE ALFA
     Indication: Product used for unknown indication
     Route: 042

REACTIONS (3)
  - Ear operation [Recovering/Resolving]
  - Surgery [Recovering/Resolving]
  - Ear inflammation [Recovering/Resolving]

NARRATIVE: CASE EVENT DATE: 20231201
